FAERS Safety Report 17453042 (Version 1)
Quarter: 2020Q1

REPORT INFORMATION
  Report Type: Spontaneous
  Country: NL (occurrence: NL)
  Receive Date: 20200224
  Receipt Date: 20200224
  Transmission Date: 20200409
  Serious: Yes (Hospitalization)
  Sender: FDA-Public Use
  Company Number: NL-MYLANLABS-2020M1019109

PATIENT
  Age: 94 Year
  Sex: Male

DRUGS (2)
  1. AMIODARONE SANDOZ [Interacting]
     Active Substance: AMIODARONE
     Indication: PRODUCT USED FOR UNKNOWN INDICATION
     Dosage: 200 MG
     Route: 065
  2. VERAPAMIL [Suspect]
     Active Substance: VERAPAMIL HYDROCHLORIDE
     Indication: PRODUCT USED FOR UNKNOWN INDICATION
     Dosage: UNK
     Route: 065

REACTIONS (12)
  - Iron deficiency anaemia [Unknown]
  - Drug interaction [Unknown]
  - Hypertension [Unknown]
  - Fall [Unknown]
  - Nervous system disorder [Unknown]
  - Personality change [Unknown]
  - Motor dysfunction [Unknown]
  - Vitamin B12 deficiency [Unknown]
  - Balance disorder [Unknown]
  - Memory impairment [Unknown]
  - Cardiac disorder [Unknown]
  - Feeling abnormal [Unknown]
